FAERS Safety Report 7266858-6 (Version None)
Quarter: 2011Q1

REPORT INFORMATION
  Report Type: 
  Country: None (occurrence: None)
  Receive Date: 20110201
  Receipt Date: 20110121
  Transmission Date: 20110831
  Serious: Yes (Other)
  Sender: FDA-Public Use
  Company Number: US-JNJFOC-20110106107

PATIENT
  Sex: Male
  Weight: 91.63 kg

DRUGS (6)
  1. MTX [Concomitant]
     Route: 065
  2. FOLIC ACID [Concomitant]
     Route: 065
  3. REMICADE [Suspect]
     Indication: RHEUMATOID ARTHRITIS
     Dosage: PT. WAS NOT COMPLIANT TO MAINTENANCE DOSING, RECEIVED INFUSIONS SPORADICALLY.
     Route: 042
  4. IBUPROFEN [Concomitant]
     Route: 065
  5. TYLENOL-500 [Concomitant]
  6. PREDNISONE [Concomitant]
     Route: 065

REACTIONS (4)
  - RALES [None]
  - CHEST DISCOMFORT [None]
  - INFUSION RELATED REACTION [None]
  - HYPERTENSION [None]
